FAERS Safety Report 9927458 (Version 2)
Quarter: 2014Q2

REPORT INFORMATION
  Report Type: Spontaneous
  Country: US (occurrence: US)
  Receive Date: 20140227
  Receipt Date: 20140415
  Transmission Date: 20141212
  Serious: Yes (Other)
  Sender: FDA-Public Use
  Company Number: PHEH2014US003666

PATIENT
  Sex: Female

DRUGS (8)
  1. VIVELLE DOT [Suspect]
     Dosage: 0.05 MG, UNK
  2. PROGESTERONE [Concomitant]
     Dosage: UNK UKN, UNK
  3. VENLAFAXINE XR [Concomitant]
     Dosage: UNK UKN, UNK
  4. CALCIUM [Concomitant]
     Dosage: UNK UKN, UNK
  5. VITAMIN D3 [Concomitant]
     Dosage: UNK UKN, UNK
  6. MAGNESIUM [Concomitant]
     Dosage: UNK UKN, UNK
  7. FISH OIL [Concomitant]
     Dosage: UNK UKN, UNK
  8. VITAMIN C WITH ZINC [Concomitant]
     Dosage: UNK UKN, UNK

REACTIONS (2)
  - Bronchitis [Unknown]
  - Malaise [Unknown]
